FAERS Safety Report 9152661 (Version 1)
Quarter: 2013Q1

REPORT INFORMATION
  Report Type: Spontaneous
  Country: US (occurrence: US)
  Receive Date: 20130308
  Receipt Date: 20130308
  Transmission Date: 20140127
  Serious: Yes (Other)
  Sender: FDA-Public Use
  Company Number: CHPA2013US004259

PATIENT
  Age: 75 Year
  Sex: Female

DRUGS (2)
  1. VOLTAREN GEL [Suspect]
     Indication: ARTHRITIS
     Dosage: INCH TO INCH AND A HALF
     Route: 061
     Dates: end: 20130302
  2. ALEVE [Concomitant]

REACTIONS (4)
  - Hypoaesthesia [Recovering/Resolving]
  - Fall [Recovering/Resolving]
  - Joint injury [Recovering/Resolving]
  - Underdose [Unknown]
